FAERS Safety Report 9221204 (Version 3)
Quarter: 2013Q2

REPORT INFORMATION
  Report Type: Spontaneous
  Country: US (occurrence: US)
  Receive Date: 20130410
  Receipt Date: 20130424
  Transmission Date: 20140414
  Serious: Yes (Death, Life-Threatening, Hospitalization, Disabling, Other)
  Sender: FDA-Public Use
  Company Number: US-009507513-1304USA003712

PATIENT
  Age: 78 Year
  Sex: Male

DRUGS (1)
  1. JANUVIA [Suspect]
     Indication: DIABETES MELLITUS
     Dosage: 50 MG, DAILY
     Route: 048
     Dates: start: 201210

REACTIONS (3)
  - Respiratory failure [Fatal]
  - Pancreatic pseudocyst [Unknown]
  - Pancreatitis [Recovering/Resolving]
